FAERS Safety Report 7017668-6 (Version None)
Quarter: 2010Q3

REPORT INFORMATION
  Report Type: 
  Country: None (occurrence: None)
  Receive Date: 20100928
  Receipt Date: 20100819
  Transmission Date: 20110219
  Serious: No
  Sender: FDA-Public Use
  Company Number: US-MYLANLABS-2010S1015153

PATIENT
  Sex: Female

DRUGS (4)
  1. TRAZODONE HCL [Suspect]
     Indication: INSOMNIA
     Dosage: 50-150MG PRN AT BEDTIME
     Route: 048
     Dates: start: 20100601, end: 20100701
  2. TRAZODONE HCL [Suspect]
     Indication: DEPRESSION
     Dosage: 50-150MG PRN AT BEDTIME
     Route: 048
     Dates: start: 20100601, end: 20100701
  3. WELLBUTRIN SR [Concomitant]
     Indication: INSOMNIA
     Dosage: FOR INSOMNIA AND DEPRESSION
  4. SYNTHROID [Concomitant]
     Indication: HYPOTHYROIDISM

REACTIONS (3)
  - DEPRESSION [None]
  - DRUG INEFFECTIVE [None]
  - INSOMNIA [None]
